FAERS Safety Report 19191192 (Version 31)
Quarter: 2022Q2

REPORT INFORMATION
  Report Type: Report from Study
  Country: GB (occurrence: GB)
  Receive Date: 20210429
  Receipt Date: 20220506
  Transmission Date: 20220721
  Serious: Yes (Hospitalization, Other)
  Sender: FDA-Public Use
  Company Number: GB-CELLTRION INC.-2021GB000337

PATIENT

DRUGS (263)
  1. TRASTUZUMAB [Suspect]
     Active Substance: TRASTUZUMAB
     Indication: Breast cancer metastatic
     Dosage: 600 MILLIGRAM, Q3W (DOSE FORM: 120)
     Route: 042
     Dates: start: 20150924, end: 20150924
  2. TRASTUZUMAB [Suspect]
     Active Substance: TRASTUZUMAB
     Indication: HER2 positive breast cancer
     Dosage: 600 MILLIGRAM (DOSE FORM: 230)
     Route: 042
     Dates: start: 20150924, end: 20150924
  3. TRASTUZUMAB [Suspect]
     Active Substance: TRASTUZUMAB
     Dosage: 600 MILLIGRAM (DOSE FORM: INFUSION, SOLUTION)
     Route: 042
     Dates: start: 20150924, end: 20150924
  4. TRASTUZUMAB [Suspect]
     Active Substance: TRASTUZUMAB
     Dosage: 600 MILLIGRAM, QD (1/DAY)(DOSE FORM: 230)
     Route: 042
     Dates: start: 20150924, end: 20150924
  5. TRASTUZUMAB [Suspect]
     Active Substance: TRASTUZUMAB
     Dosage: 600 MG, EVERY 3 WEEKS (DOSE FORM: 230; CUMULATIVE DOSE TO FIRST REACTION: 4544.048 MG)
     Route: 042
     Dates: start: 20150924, end: 20150924
  6. TRASTUZUMAB [Suspect]
     Active Substance: TRASTUZUMAB
     Dosage: 600 MG, EVERY 3 WEEKS (DOSE FORM: 230; CUMULATIVE DOSE TO FIRST REACTION: 4544.048 MG)
     Route: 042
     Dates: start: 20150924, end: 20150924
  7. TRASTUZUMAB [Suspect]
     Active Substance: TRASTUZUMAB
     Dosage: 600 MG, QD (1/DAY) (DOSE FORM: 230) (CUMULATIVE DOSE TO FIRST REACTION: 600 MG)
     Route: 042
     Dates: start: 20150924, end: 20150924
  8. TRASTUZUMAB [Suspect]
     Active Substance: TRASTUZUMAB
     Dosage: 260 MILLIGRAM, Q3W (DOSE FORM: 120; CUMULATIVE DOSE TO FIRST REACTION: 2953.6309 MG)
     Route: 042
     Dates: start: 20150924, end: 20150924
  9. TRASTUZUMAB [Suspect]
     Active Substance: TRASTUZUMAB
     Dosage: 260 MG, Q2WEEKS
     Route: 042
     Dates: start: 20150924, end: 20150924
  10. TRASTUZUMAB [Suspect]
     Active Substance: TRASTUZUMAB
     Dosage: 450 MILLIGRAM, Q2W (DOSE FORM:120; CUMULATIVE DOSE TO FIRST REACTION: 4404.9106 MG)
     Route: 042
     Dates: start: 20151016
  11. TRASTUZUMAB [Suspect]
     Active Substance: TRASTUZUMAB
     Dosage: 450 MILLIGRAM, Q2W (DOSE FORM:230)
     Route: 042
     Dates: start: 20151016
  12. TRASTUZUMAB [Suspect]
     Active Substance: TRASTUZUMAB
     Dosage: 450 MILLIGRAM, Q2W (DOSE FORM:230)
     Route: 042
     Dates: start: 20151016
  13. TRASTUZUMAB [Suspect]
     Active Substance: TRASTUZUMAB
     Dosage: 450 MILLIGRAM, Q3W (DOSE FORM:230)
     Route: 042
     Dates: start: 20151016
  14. TRASTUZUMAB [Suspect]
     Active Substance: TRASTUZUMAB
     Dosage: 450 MG, EVERY 2 WEEKS (DOSE FORM: 230; CUMULATIVE DOSE TO FIRST REACTION: 4404.9106 MG)
     Route: 042
     Dates: start: 20151016
  15. TRASTUZUMAB [Suspect]
     Active Substance: TRASTUZUMAB
     Dosage: 450 MG, EVERY 2 WEEKS (DOSE FORM: 230; CUMULATIVE DOSE TO FIRST REACTION: 4404.9106 MG)
     Route: 042
     Dates: start: 20151016
  16. TRASTUZUMAB [Suspect]
     Active Substance: TRASTUZUMAB
     Dosage: 450 MG, EVERY 3 WEEKS (DOSE FORM:230) (CUMULATIVE DOSE TO FIRST REACTION: 600 MG)
     Route: 042
     Dates: start: 20151016
  17. TRASTUZUMAB [Suspect]
     Active Substance: TRASTUZUMAB
     Dosage: 450 MILLIGRAM
     Route: 042
     Dates: start: 20151016
  18. TRASTUZUMAB [Suspect]
     Active Substance: TRASTUZUMAB
     Dosage: TARGETED THERAPY
     Route: 042
     Dates: start: 20150924, end: 20150924
  19. TRASTUZUMAB [Suspect]
     Active Substance: TRASTUZUMAB
     Dosage: 600 MG
     Route: 042
     Dates: start: 20150924, end: 20150924
  20. TRASTUZUMAB [Suspect]
     Active Substance: TRASTUZUMAB
     Dosage: 450 MG
     Route: 042
     Dates: start: 20151016
  21. TRASTUZUMAB [Suspect]
     Active Substance: TRASTUZUMAB
     Dosage: 260 MG, EVERY 3 WEEKS, TARGETED THERAPY (DOSE FORM:293)
     Route: 042
     Dates: start: 20150924, end: 20150924
  22. TRASTUZUMAB [Suspect]
     Active Substance: TRASTUZUMAB
     Dosage: 450 MG, Q3W (DOSE FORM:293) (CUMULATIVE DOSE TO FIRST REACTION: 2936.607 MG)
     Route: 042
     Dates: start: 20151016
  23. TRASTUZUMAB [Suspect]
     Active Substance: TRASTUZUMAB
     Dosage: 600 MG, QD (PHARMACEUTICAL DOSAGE FORM: 293)
     Route: 042
     Dates: start: 20150924, end: 20150924
  24. TRASTUZUMAB [Suspect]
     Active Substance: TRASTUZUMAB
     Dosage: 450 MG, EVERY 2 WEEKS (450 MILLIGRAM, Q3W; DOSE FORM: 120; CUMULATIVE DOSE TO FIRST REACTION: 4404.9
     Route: 042
     Dates: start: 20151016
  25. TRASTUZUMAB [Suspect]
     Active Substance: TRASTUZUMAB
     Dosage: 450 MILLIGRAM, Q3W, DOSE FORM: 120, CUMULATIVE DOSE: 4404.9106 MG)
     Route: 042
     Dates: start: 20151016
  26. TRASTUZUMAB [Suspect]
     Active Substance: TRASTUZUMAB
     Indication: Breast cancer metastatic
     Dosage: 600 MG, QD (DOSE FORM: 356; CUMULATIVE DOSE TO FIRST REACTION: 95425.0 MG)
     Route: 042
     Dates: start: 20150924, end: 20150924
  27. TRASTUZUMAB [Suspect]
     Active Substance: TRASTUZUMAB
     Indication: HER2 positive breast cancer
     Dosage: 450 MILLIGRAM, Q2W (DOSE FORM:230) (DOSE FORM: 356; CUMULATIVE DOSE: 4404.9106 MG)
     Route: 042
     Dates: start: 20151016
  28. TRASTUZUMAB [Suspect]
     Active Substance: TRASTUZUMAB
     Dosage: 600 MILLIGRAM (DOSE FORM: INFUSION, SOLUTION) (DOSE FORM: 356)
     Route: 042
     Dates: start: 20150924, end: 20150924
  29. TRASTUZUMAB [Suspect]
     Active Substance: TRASTUZUMAB
     Dosage: 450 MILLIGRAM, Q2W (DOSE FORM:230) (DOSE FORM: 120; CUMULATIVE DOSE: 4404.9106 MG)
     Route: 042
     Dates: start: 20151016
  30. TRASTUZUMAB [Suspect]
     Active Substance: TRASTUZUMAB
     Dosage: 450 MILLIGRAM, EVERY 3 WEEKS (DOSE FORM:230; CUMULATIVE DOSE: 2936.6072 MG) (DOSE FORM: 356)
     Route: 042
     Dates: start: 20151016
  31. TRASTUZUMAB [Suspect]
     Active Substance: TRASTUZUMAB
     Dosage: 600 MILLIGRAM, Q3W (DOSE FORM: 120) (DOSE FORM: 356)
     Route: 042
     Dates: start: 20150924, end: 20150924
  32. TRASTUZUMAB [Suspect]
     Active Substance: TRASTUZUMAB
     Dosage: 260 MG, Q2WEEKS (DOSE FORM: 356; CUMULATIVE DOSE: 2953.6309 MG)
     Route: 042
     Dates: start: 20150924, end: 20150924
  33. TRASTUZUMAB [Suspect]
     Active Substance: TRASTUZUMAB
     Dosage: 600 MG, EVERY 3 WEEKS (DOSE FORM: 230; CUMULATIVE DOSE TO FIRST REACTION: 4544.048 MG) (DOSE FORM: 3
     Route: 042
     Dates: start: 20150924, end: 20150924
  34. TRASTUZUMAB [Suspect]
     Active Substance: TRASTUZUMAB
     Dosage: 450 MG, EVERY 2 WEEKS (DOSE FORM: 230; CUMULATIVE DOSE TO FIRST REACTION: 4404.9106 MG) (DOSE FORM:
     Route: 042
     Dates: start: 20151016
  35. TRASTUZUMAB [Suspect]
     Active Substance: TRASTUZUMAB
     Dosage: 450 MG, EVERY 2 WEEKS (DOSE FORM: 230; CUMULATIVE DOSE TO FIRST REACTION: 4404.9106 MG) (DOSE FORM:
     Route: 042
     Dates: start: 20151016
  36. TRASTUZUMAB [Suspect]
     Active Substance: TRASTUZUMAB
     Dosage: 600 MG, QD (1/DAY) (DOSE FORM: 356; CUMULATIVE DOSE TO FIRST REACTION: 600 MG)
     Route: 042
     Dates: start: 20150924, end: 20150924
  37. TRASTUZUMAB [Suspect]
     Active Substance: TRASTUZUMAB
     Dosage: 450 MILLIGRAM, Q2W (DOSE FORM:120) (CUMULATIVE DOSE TO FIRST REACTION: 4404.9106 MG) (DOSAGE FORM: 3
     Route: 042
     Dates: start: 20151016
  38. ATEZOLIZUMAB [Suspect]
     Active Substance: ATEZOLIZUMAB
     Indication: HER2 positive breast cancer
     Dosage: 1200 MG, Q3W (EVERY 3 WEEKS) (TARGETED THERAPY) (DOSE FORM: 120)
     Route: 042
     Dates: start: 20170510, end: 20170628
  39. ATEZOLIZUMAB [Suspect]
     Active Substance: ATEZOLIZUMAB
     Indication: Breast cancer metastatic
     Dosage: UNK (PHARMACEUTICAL DOSE FORM: 120)
     Route: 065
  40. ATEZOLIZUMAB [Suspect]
     Active Substance: ATEZOLIZUMAB
     Dosage: 1200 MILLIGRAM, TID (TARGETED THERAPY); (PHARMACEUTICAL DOSE FORM: 120)
     Route: 042
     Dates: start: 20170510, end: 20170628
  41. ATEZOLIZUMAB [Suspect]
     Active Substance: ATEZOLIZUMAB
     Dosage: 1200 MG, 3/WEEK (CV)
     Route: 042
     Dates: start: 20170510, end: 20170628
  42. ATEZOLIZUMAB [Suspect]
     Active Substance: ATEZOLIZUMAB
     Dosage: DRUG CUMULATIVE DOSAGE NUMBER 3600 MG
     Route: 042
  43. ATEZOLIZUMAB [Suspect]
     Active Substance: ATEZOLIZUMAB
     Dosage: 1200 MG, (TARGETED THERAPY)
     Route: 042
     Dates: start: 20170510, end: 20170628
  44. ATEZOLIZUMAB [Suspect]
     Active Substance: ATEZOLIZUMAB
     Dosage: DRUG CUMULATIVE DOSAGE NUMBER 3600 MG
     Route: 042
  45. ATEZOLIZUMAB [Suspect]
     Active Substance: ATEZOLIZUMAB
     Dosage: DRUG CUMULATIVE DOSAGE NUMBER 3600 MG
     Route: 042
  46. ATEZOLIZUMAB [Suspect]
     Active Substance: ATEZOLIZUMAB
     Dosage: DRUG CUMULATIVE DOSAGE NUMBER 3600 MG
     Route: 042
  47. ATEZOLIZUMAB [Suspect]
     Active Substance: ATEZOLIZUMAB
     Dosage: TARGETED THERAPY
     Route: 042
  48. ATEZOLIZUMAB [Suspect]
     Active Substance: ATEZOLIZUMAB
     Indication: Breast cancer metastatic
     Dosage: DRUG CUMULATIVE DOSAGE NUMBER 3600 MG
     Route: 042
  49. ATEZOLIZUMAB [Suspect]
     Active Substance: ATEZOLIZUMAB
     Indication: HER2 positive breast cancer
     Dosage: DRUG CUMULATIVE DOSAGE NUMBER 3600 MG
     Route: 042
  50. ATEZOLIZUMAB [Suspect]
     Active Substance: ATEZOLIZUMAB
     Dosage: 1200 MILLIGRAM, Q3W (TARGETED THERAPY) (DOSE FORM: 120)
     Route: 041
     Dates: start: 20170510, end: 20170628
  51. ATEZOLIZUMAB [Suspect]
     Active Substance: ATEZOLIZUMAB
     Dosage: 1200 MG, EVERY 3 WEEKS, TARGETED THERAPY
     Route: 042
     Dates: start: 20170510, end: 20170628
  52. ATEZOLIZUMAB [Suspect]
     Active Substance: ATEZOLIZUMAB
     Dosage: UNK
  53. ATEZOLIZUMAB [Suspect]
     Active Substance: ATEZOLIZUMAB
     Dosage: UNK
  54. ATEZOLIZUMAB [Suspect]
     Active Substance: ATEZOLIZUMAB
     Dosage: DRUG CUMULATIVE DOSAGE NUMBER 3600 MG
     Route: 042
  55. ATEZOLIZUMAB [Suspect]
     Active Substance: ATEZOLIZUMAB
     Dosage: DRUG CUMULATIVE DOSAGE NUMBER 3600 MG
     Route: 042
  56. ATEZOLIZUMAB [Suspect]
     Active Substance: ATEZOLIZUMAB
     Dosage: 1200 MG, 3/WEEK (CV)); PHARMACEUTICAL DOSE FORM: 120
     Route: 042
     Dates: start: 20170510, end: 20170628
  57. ATEZOLIZUMAB [Suspect]
     Active Substance: ATEZOLIZUMAB
     Dosage: 1200 MILLIGRAM, Q3W (TARGETED THERAPY); PHARMACEUTICAL DOSE FORM: 120
     Route: 042
     Dates: start: 20170510, end: 20170628
  58. ATEZOLIZUMAB [Suspect]
     Active Substance: ATEZOLIZUMAB
     Dosage: DRUG CUMULATIVE DOSAGE NUMBER 3600 MG
     Route: 042
  59. CAPECITABINE [Suspect]
     Active Substance: CAPECITABINE
     Indication: Breast cancer metastatic
     Dosage: 3500 MILLIGRAM (DOSE FORM: 82)
     Route: 048
     Dates: start: 20170905, end: 20171128
  60. CAPECITABINE [Suspect]
     Active Substance: CAPECITABINE
     Indication: HER2 positive breast cancer
     Dosage: 3500 MG (MANUFACTURER UNKNOWN)
     Route: 048
     Dates: start: 20170905
  61. CAPECITABINE [Suspect]
     Active Substance: CAPECITABINE
     Dosage: 3500 MG (MANUFACTURER UNKNOWN)
     Route: 048
     Dates: start: 20170905, end: 20171219
  62. CAPECITABINE [Suspect]
     Active Substance: CAPECITABINE
     Dosage: 1500 MILLIGRAM (DOSE FORM: 82)
     Route: 048
     Dates: start: 20171128, end: 20171219
  63. CAPECITABINE [Suspect]
     Active Substance: CAPECITABINE
     Dosage: 1000 MILLIGRAM (DOSAGE FORM: 82)
     Route: 048
     Dates: start: 20171128, end: 20171219
  64. CAPECITABINE [Suspect]
     Active Substance: CAPECITABINE
     Dosage: 1500 MG (MANUFACTURER UNKNOWN, 1500 MG AND 1000 MG)
     Dates: start: 20171128
  65. CAPECITABINE [Suspect]
     Active Substance: CAPECITABINE
     Dosage: 1500 MILLIGRAM/ 1500 MG, UNK(DOSE FORM: 245)
     Route: 048
     Dates: start: 20171128, end: 20171219
  66. CAPECITABINE [Suspect]
     Active Substance: CAPECITABINE
     Dosage: 1000 MG, TABLET/ 1000 MG, UNK (DOSE FORM: 245)
     Route: 048
     Dates: start: 20171128, end: 20171219
  67. CAPECITABINE [Suspect]
     Active Substance: CAPECITABINE
     Dosage: 3500 MG, TABLET/3500 MG, UNK (DOSE FORM: 245)
     Route: 048
     Dates: start: 20170905, end: 20171128
  68. CAPECITABINE [Suspect]
     Active Substance: CAPECITABINE
     Indication: HER2 positive breast cancer
     Dosage: 3500 MG, UNK (DOSE FORM: 245)
     Route: 048
     Dates: start: 20170905, end: 20171128
  69. CAPECITABINE [Suspect]
     Active Substance: CAPECITABINE
     Indication: Breast cancer metastatic
     Dosage: 1500 MG (MANUFACTURER UNKNOWN, 1500 MG AND 1000 MG) (DOSE FORM: 245)
     Dates: start: 20171128
  70. CAPECITABINE [Suspect]
     Active Substance: CAPECITABINE
     Dosage: 3500 MG (DOSE FORM: 245)
     Route: 048
     Dates: start: 20170905, end: 20171128
  71. CAPECITABINE [Suspect]
     Active Substance: CAPECITABINE
     Dosage: 3500 MG (MANUFACTURER UNKNOWN) (DOSE FORM:245)
     Route: 048
     Dates: start: 20190905
  72. CAPECITABINE [Suspect]
     Active Substance: CAPECITABINE
     Dosage: 3500 MG, TABLET (DOSE FORM: 245) (DOSE FORM: 245)
     Route: 048
     Dates: start: 20170905, end: 20171128
  73. CAPECITABINE [Suspect]
     Active Substance: CAPECITABINE
     Indication: Breast cancer metastatic
     Dosage: 3500 MG (DOSE FORM: 245)
     Route: 048
     Dates: start: 20170905, end: 20171128
  74. CAPECITABINE [Suspect]
     Active Substance: CAPECITABINE
     Indication: HER2 positive breast cancer
     Dosage: 3500 MG, UNK/3500 MG, TABLET (DOSE FORM: 245)
     Route: 048
     Dates: start: 20170905, end: 20171128
  75. CAPECITABINE [Suspect]
     Active Substance: CAPECITABINE
     Dosage: 1000 MG, UNK (DOSE FORM: 245)
     Route: 048
     Dates: start: 20171128, end: 20171219
  76. CAPECITABINE [Suspect]
     Active Substance: CAPECITABINE
     Dosage: 1000 MG (DOSE FORM: 245)
     Route: 048
     Dates: start: 20171128, end: 20171219
  77. CAPECITABINE [Suspect]
     Active Substance: CAPECITABINE
     Dosage: 1500 MG, UNK (DOSE FORM: 245)
     Route: 048
     Dates: start: 20171128, end: 20171219
  78. CAPECITABINE [Suspect]
     Active Substance: CAPECITABINE
     Dosage: 1500 MG (DOSE FORM: 245)
     Route: 048
     Dates: start: 20171128, end: 20171219
  79. CAPECITABINE [Suspect]
     Active Substance: CAPECITABINE
     Dosage: 3500 MG (MANUFACTURER UNKNOWN) (DOSE FORM: 245)
     Route: 048
     Dates: start: 20170905, end: 20171128
  80. CAPECITABINE [Suspect]
     Active Substance: CAPECITABINE
     Dosage: 1500 MG (MANUFACTURER UNKNOWN, 1500 MG AND 1000 MG) (DOSE FORM: 245)
     Dates: start: 20171128
  81. CAPECITABINE [Suspect]
     Active Substance: CAPECITABINE
     Dosage: 1000 MG
     Route: 048
     Dates: start: 20171128, end: 20171219
  82. CAPECITABINE [Suspect]
     Active Substance: CAPECITABINE
     Dosage: 1500 MG
     Route: 048
     Dates: start: 20171128, end: 20171219
  83. CAPECITABINE [Suspect]
     Active Substance: CAPECITABINE
     Dosage: 3500 MG
     Route: 048
     Dates: start: 20170905, end: 20171128
  84. CAPECITABINE [Suspect]
     Active Substance: CAPECITABINE
     Dosage: 3500 MG, UNK (DOSE FORM: 245)
     Route: 048
     Dates: start: 20170905, end: 20171128
  85. CAPECITABINE [Suspect]
     Active Substance: CAPECITABINE
     Dosage: 3500 MG (MANUFACTURER UNKNOWN) (DOSE FORM: 245)
     Route: 048
     Dates: start: 20170905
  86. CAPECITABINE [Suspect]
     Active Substance: CAPECITABINE
     Indication: Breast cancer
     Dosage: 3500 MG, UNK (DOSE FORM: 245)
     Route: 048
     Dates: start: 20170905, end: 20171128
  87. CAPECITABINE [Suspect]
     Active Substance: CAPECITABINE
     Indication: HER2 positive breast cancer
     Dosage: 1500 MG, UNK (DOSE FORM: 245)
     Route: 048
     Dates: start: 20111128, end: 20171219
  88. CAPECITABINE [Suspect]
     Active Substance: CAPECITABINE
     Dosage: 1000 MG, UNK (DOSE FORM:245)
     Route: 048
     Dates: start: 20171128, end: 20171219
  89. CARBOPLATIN [Suspect]
     Active Substance: CARBOPLATIN
     Indication: Breast cancer metastatic
     Dosage: 240 MG, WEEKLY/EVERY 7 DAYS (DOSE FORM: 120)
     Route: 042
     Dates: start: 20181219, end: 20190117
  90. CARBOPLATIN [Suspect]
     Active Substance: CARBOPLATIN
     Indication: HER2 positive breast cancer
     Dosage: UNK
  91. CARBOPLATIN [Suspect]
     Active Substance: CARBOPLATIN
     Dosage: 240 MG, WEEKLY (EVERY 7 DAYS)
     Route: 042
     Dates: start: 20181219, end: 20190117
  92. DOCETAXEL [Suspect]
     Active Substance: DOCETAXEL
     Indication: HER2 positive breast cancer
     Dosage: 132 MILLIGRAM, Q3W (DOSE FORM:120; CUMULATIVE DOSE TO FIRST REACTION: 993.4048 MG)
     Route: 042
     Dates: start: 20150925, end: 20151016
  93. DOCETAXEL [Suspect]
     Active Substance: DOCETAXEL
     Indication: Breast cancer metastatic
     Dosage: 132 MILLIGRAM, Q3W (CUMULATIVE DOSE TO FIRST REACTION: 993.4048 MG)
     Route: 042
     Dates: start: 20150925, end: 20151016
  94. DOCETAXEL [Suspect]
     Active Substance: DOCETAXEL
     Dosage: 132 MILLIGRAM, UNK (DOSE FORM:230)
     Route: 042
     Dates: start: 20150925, end: 20151016
  95. DOCETAXEL [Suspect]
     Active Substance: DOCETAXEL
     Dosage: 108 MILLIGRAM, Q3W (DOSE FORM: 120)
     Route: 042
     Dates: start: 20151016, end: 20160108
  96. DOCETAXEL [Suspect]
     Active Substance: DOCETAXEL
     Dosage: 108 MG
     Route: 042
     Dates: start: 20151016, end: 20160108
  97. DOCETAXEL [Suspect]
     Active Substance: DOCETAXEL
     Dosage: 108 MG, UNKNOWN  (DOSE FORM: 230)
     Route: 042
     Dates: start: 20151016, end: 20160108
  98. DOCETAXEL [Suspect]
     Active Substance: DOCETAXEL
     Dosage: 108 MG EVERY 3 WEEKS (CUMULATIVE DOSE TO FIRST REACTION: 704.7857 MG)
     Route: 042
     Dates: start: 20151016
  99. DOCETAXEL [Suspect]
     Active Substance: DOCETAXEL
     Dosage: 108 MG EVERY 3 WEEKS (CUMULATIVE DOSE TO FIRST REACTION: 704.7857 MG)
     Route: 042
     Dates: start: 20151016
  100. DOCETAXEL [Suspect]
     Active Substance: DOCETAXEL
     Dosage: 132 MG
     Route: 042
     Dates: start: 20150925, end: 20151016
  101. DOCETAXEL [Suspect]
     Active Substance: DOCETAXEL
     Indication: HER2 positive breast cancer
     Dosage: 108 MG
     Route: 042
     Dates: start: 20151016, end: 20160108
  102. DOCETAXEL [Suspect]
     Active Substance: DOCETAXEL
     Indication: Breast cancer metastatic
     Dosage: 132 MILLIGRAM, Q3W (DOSE FORM:120; CUMULATIVE DOSE TO FIRST REACTION: 993.4048 MG) (DOSE FORM: 230)
     Route: 042
     Dates: start: 20150925, end: 20151016
  103. DOCETAXEL [Suspect]
     Active Substance: DOCETAXEL
     Dosage: 108 MG EVERY 3 WEEKS (CUMULATIVE DOSE TO FIRST REACTION: 704.7857 MG) (DOSE FORM: 230)
     Route: 042
     Dates: start: 20151016
  104. DOCETAXEL [Suspect]
     Active Substance: DOCETAXEL
     Dosage: 108 MILLIGRAM, Q3W (DOSE FORM: 120; CUMULATIVE DOSE TO FIRST REACTION: 704.8 MG)
     Route: 042
     Dates: start: 20151016, end: 20160108
  105. DOCETAXEL [Suspect]
     Active Substance: DOCETAXEL
     Dosage: 132 MG, EVERY 3 WEEKS
     Route: 042
     Dates: start: 20150925, end: 20151016
  106. DOCETAXEL [Suspect]
     Active Substance: DOCETAXEL
     Dosage: 108 MG, EVERY 3 WEEKS
     Route: 042
     Dates: start: 20151016, end: 20160108
  107. DOCETAXEL [Suspect]
     Active Substance: DOCETAXEL
     Dosage: 132 MG
     Route: 042
     Dates: start: 20150925, end: 20151016
  108. ERIBULIN [Suspect]
     Active Substance: ERIBULIN
     Indication: Breast cancer metastatic
     Dosage: 2.5 MG, UNKNOWN (DOSE FORM: 120)
     Route: 042
     Dates: start: 20180822, end: 20181010
  109. ERIBULIN [Suspect]
     Active Substance: ERIBULIN
     Indication: HER2 positive breast cancer
     Dosage: UNK (DOSE FORM: 120)
     Route: 065
  110. ERIBULIN [Suspect]
     Active Substance: ERIBULIN
     Dosage: UNK
     Route: 065
  111. ERIBULIN [Suspect]
     Active Substance: ERIBULIN
     Dosage: 2.5 MG
     Route: 042
     Dates: start: 20180822, end: 20181010
  112. ERIBULIN MESYLATE [Suspect]
     Active Substance: ERIBULIN MESYLATE
     Indication: Breast cancer metastatic
     Dosage: 2.5 MG
     Route: 042
     Dates: start: 20180822, end: 20181010
  113. NERATINIB [Suspect]
     Active Substance: NERATINIB
     Indication: Breast cancer metastatic
     Dosage: 240 MG, QD (1/DAY) (1X/DAY) (MANUFACTURER UNKNOWN)
     Route: 048
     Dates: start: 20180220, end: 20180717
  114. NERATINIB [Suspect]
     Active Substance: NERATINIB
     Indication: HER2 positive breast cancer
     Dosage: UNK
  115. NERATINIB [Suspect]
     Active Substance: NERATINIB
     Dosage: 240 MG
     Route: 048
     Dates: start: 20180220, end: 20180717
  116. NERATINIB [Suspect]
     Active Substance: NERATINIB
     Indication: HER2 positive breast cancer
     Dosage: 240 MG, QD (1/DAY), MANUFACTURER UNKNOWN/240 MILLIGRAM, QD
     Route: 048
     Dates: start: 20180220, end: 20180717
  117. NERATINIB [Suspect]
     Active Substance: NERATINIB
     Indication: Breast cancer metastatic
     Dosage: UNK
  118. NERATINIB [Suspect]
     Active Substance: NERATINIB
     Dosage: 240 MG, QD (1/DAY), MANUFACTURER UNKNOWN (CUMULATIVE DOSE: 19440 MG)
     Route: 048
     Dates: start: 20180220, end: 20180717
  119. PERTUZUMAB [Suspect]
     Active Substance: PERTUZUMAB
     Indication: HER2 positive breast cancer
     Dosage: 420 MG, Q3W (DOSE FORM:INFUSION, SOLUTION) (DOSE FORM: 230)
     Route: 042
     Dates: start: 20170324, end: 20170324
  120. PERTUZUMAB [Suspect]
     Active Substance: PERTUZUMAB
     Indication: Breast cancer metastatic
     Dosage: 840 MG, QD (1/DAY) (DOSE FORM: 230)
     Route: 042
     Dates: start: 20150924, end: 20150924
  121. PERTUZUMAB [Suspect]
     Active Substance: PERTUZUMAB
     Dosage: 840 MG/M2, EVERY 3 WEEKS (DOSE FORM: 230) (CUMULATIVE DOSE TO FIRST REACTION: 420 MG)
     Route: 042
     Dates: start: 20150924, end: 20150924
  122. PERTUZUMAB [Suspect]
     Active Substance: PERTUZUMAB
     Dosage: 840 MG/M2, EVERY 3 WEEKS (DOSE FORM: 230)
     Route: 042
     Dates: start: 20150924, end: 20150924
  123. PERTUZUMAB [Suspect]
     Active Substance: PERTUZUMAB
     Dosage: 420 MG, Q3W (EVERY 3 WEEKS)/420 MG, TIW (DOSE FORM: 230; CUMULATIVE DOSE TO FIRST REACTION: 2740.833
     Route: 042
     Dates: start: 20151016, end: 20170324
  124. PERTUZUMAB [Suspect]
     Active Substance: PERTUZUMAB
     Dosage: 840 MG EVERY 3 WEEKS (PHARMACEUTICAL DOSE FORM: INFUSION, SOLUTION) (DOSE FORM: 230)
     Route: 042
     Dates: start: 20150924, end: 20150924
  125. PERTUZUMAB [Suspect]
     Active Substance: PERTUZUMAB
     Dosage: 420 MILLIGRAM, Q3W (DOSE FORM: 230) (EVERY 3 WEEKS)
     Route: 042
     Dates: start: 20151016, end: 20170324
  126. PERTUZUMAB [Suspect]
     Active Substance: PERTUZUMAB
     Dosage: 840 MG/M2, EVERY 3 WEEKS (DOSE FORM: 230)
     Route: 042
     Dates: start: 20150924, end: 20150924
  127. PERTUZUMAB [Suspect]
     Active Substance: PERTUZUMAB
     Dosage: 420 MILLIGRAM, Q3W (DOSE FORM: INFUSION, SOLUTION) (DOSE FORM: 230)
     Route: 042
     Dates: start: 20151016, end: 20170324
  128. PERTUZUMAB [Suspect]
     Active Substance: PERTUZUMAB
     Dosage: 840 MILLIGRAM, Q3W (DOSE FORM: 120)
     Route: 042
     Dates: start: 20150924, end: 20150924
  129. PERTUZUMAB [Suspect]
     Active Substance: PERTUZUMAB
     Dosage: 420 MG, TIW (DOSE FORM: 230; CUMULATIVE DOSE TO FIRST REACTION: 2740.8333 MG)
     Route: 042
     Dates: start: 20151016, end: 20170324
  130. PERTUZUMAB [Suspect]
     Active Substance: PERTUZUMAB
     Dosage: 420 MILLIGRAM, 3XW (DOSE FORM: 120)
     Route: 042
     Dates: start: 20170324
  131. PERTUZUMAB [Suspect]
     Active Substance: PERTUZUMAB
     Dosage: 840 MG EVERY 3 WEEKS (DOSE FORM: 230; CUMULATIVE DOSE TO FIRST REACTION: 6361.6665 MG)
     Route: 042
     Dates: start: 20150924, end: 20150924
  132. PERTUZUMAB [Suspect]
     Active Substance: PERTUZUMAB
     Dosage: 840 MG EVERY 3 WEEKS (DOSE FORM: 230; CUMULATIVE DOSE TO FIRST REACTION: 6361.6665 MG)
     Route: 042
     Dates: start: 20150924, end: 20150924
  133. PERTUZUMAB [Suspect]
     Active Substance: PERTUZUMAB
     Dosage: 420 MG, EVERY 3 WEEKS (DOSE FORM: 230)
     Route: 042
     Dates: start: 20151016, end: 20170324
  134. PERTUZUMAB [Suspect]
     Active Substance: PERTUZUMAB
     Dosage: 420 MG, EVERY 3 WEEKS (DOSE FORM: 230)
     Route: 042
     Dates: start: 20170324
  135. PERTUZUMAB [Suspect]
     Active Substance: PERTUZUMAB
     Dosage: 840 MG EVERY 3 WEEKS (DOSE FORM: 230; CUMULATIVE DOSE TO FIRST REACTION: 6361.6665 MG) (DOSE FORM: 2
     Route: 042
     Dates: start: 20150924, end: 20150924
  136. PERTUZUMAB [Suspect]
     Active Substance: PERTUZUMAB
     Dosage: 420 MG (DOSE FORM: 230)
     Route: 042
     Dates: start: 20170324
  137. PERTUZUMAB [Suspect]
     Active Substance: PERTUZUMAB
     Dosage: 840 MG/M2
     Route: 042
     Dates: start: 20150924, end: 20150924
  138. PERTUZUMAB [Suspect]
     Active Substance: PERTUZUMAB
     Dosage: 420 MG
     Route: 042
     Dates: start: 20170324
  139. PERTUZUMAB [Suspect]
     Active Substance: PERTUZUMAB
     Dosage: 420 MG
     Route: 042
     Dates: start: 20151016, end: 20170324
  140. PERTUZUMAB [Suspect]
     Active Substance: PERTUZUMAB
     Dosage: 840 MG/M2, TIW (PHARMACEUTICAL DOSAGE FORM: 230)
     Route: 042
     Dates: start: 20150924, end: 20150924
  141. PERTUZUMAB [Suspect]
     Active Substance: PERTUZUMAB
     Dosage: DOSE FORM: 230
     Route: 042
     Dates: start: 20170324
  142. PERTUZUMAB [Suspect]
     Active Substance: PERTUZUMAB
     Dosage: 420 MILLIGRAM, DOSE FORMULATION
     Dates: start: 20151015, end: 20170324
  143. PERTUZUMAB [Suspect]
     Active Substance: PERTUZUMAB
     Indication: Breast cancer metastatic
     Dosage: 420 MG,EVERY 3 WEEKS (DOSE FORM: 230)
     Route: 042
     Dates: start: 20151016, end: 20170324
  144. PERTUZUMAB [Suspect]
     Active Substance: PERTUZUMAB
     Indication: HER2 positive breast cancer
     Dosage: 840 MG/M2, EVERY 3 WEEKS (DOSE FORM: 230)
     Route: 042
     Dates: start: 20150924, end: 20150924
  145. PERTUZUMAB [Suspect]
     Active Substance: PERTUZUMAB
     Dosage: 840 MG EVERY 3 WEEKS (DOSE FORM: 230; CUMULATIVE DOSE TO FIRST REACTION: 6361.6665 MG)
     Route: 042
     Dates: start: 20150924, end: 20150924
  146. PERTUZUMAB [Suspect]
     Active Substance: PERTUZUMAB
     Dosage: 420 MG,EVERY 3 WEEKS (DOSE FORM: 230)
     Route: 042
     Dates: start: 20151016, end: 20170324
  147. PERTUZUMAB [Suspect]
     Active Substance: PERTUZUMAB
     Dosage: 840 MG/M2, EVERY 3 WEEKS (DOSE FORM: 230)
     Route: 042
     Dates: start: 20150924, end: 20150924
  148. PERTUZUMAB [Suspect]
     Active Substance: PERTUZUMAB
     Dosage: 420 MG, EVERY 3 WEEKS (DOSE FORM: 230)
     Route: 042
     Dates: start: 20170324
  149. PERTUZUMAB [Suspect]
     Active Substance: PERTUZUMAB
     Dosage: 420 MG, EVERY 3 WEEKS (DOSE FORM: 230)
     Route: 042
     Dates: start: 20170324
  150. PERTUZUMAB [Suspect]
     Active Substance: PERTUZUMAB
     Dosage: 840 MILLIGRAM, Q3W
     Route: 042
     Dates: start: 20150924, end: 20150924
  151. PERTUZUMAB [Suspect]
     Active Substance: PERTUZUMAB
     Dosage: 420 MG, Q3W (DOSE FORM:INFUSION, SOLUTION; DOSAGE FORM: 230)
     Route: 042
     Dates: start: 20170324, end: 20170324
  152. PERTUZUMAB [Suspect]
     Active Substance: PERTUZUMAB
     Dosage: 420 MG, 2/WEEK (DOSE FORM: 2:30)
     Route: 042
     Dates: start: 20151016, end: 20170324
  153. PERTUZUMAB [Suspect]
     Active Substance: PERTUZUMAB
     Dosage: 840 MG EVERY 3 WEEKS (DOSE FORM: 230; CUMULATIVE DOSE TO FIRST REACTION: 6361.6665 MG)
     Route: 042
     Dates: start: 20150924, end: 20150924
  154. PERTUZUMAB [Suspect]
     Active Substance: PERTUZUMAB
     Dosage: 840 MG, QD (1/DAY) (DOSE FORM: 230)
     Route: 042
     Dates: start: 20150924, end: 20150924
  155. PERTUZUMAB [Suspect]
     Active Substance: PERTUZUMAB
     Dosage: 840 MG EVERY 3 WEEKS (PHARMACEUTICAL DOSE FORM: INFUSION, SOLUTION), DOSE FORM: 230)
     Route: 042
     Dates: start: 20150924, end: 20150924
  156. PERTUZUMAB [Suspect]
     Active Substance: PERTUZUMAB
     Dosage: 420 MILLIGRAM, Q3W (DOSE FORM: INFUSION, SOLUTION), DOSE FORM: 230)
     Route: 042
     Dates: start: 20151016, end: 20170324
  157. PERTUZUMAB [Suspect]
     Active Substance: PERTUZUMAB
     Dosage: 420 MG (DOSE FORM: 230)
     Route: 042
     Dates: start: 20170324, end: 20170324
  158. PERTUZUMAB [Suspect]
     Active Substance: PERTUZUMAB
     Dosage: 420 MILLIGRAM, Q3W, DOSE FORM: 230, CUMULATIVE DOSE: 6030.114)
     Route: 042
     Dates: start: 20151016, end: 20170324
  159. ADO-TRASTUZUMAB EMTANSINE [Suspect]
     Active Substance: ADO-TRASTUZUMAB EMTANSINE
     Indication: Breast cancer metastatic
     Dosage: DOSE FORM: 230; CUMULATIVE DOSE: 17721.78 MG
  160. ADO-TRASTUZUMAB EMTANSINE [Suspect]
     Active Substance: ADO-TRASTUZUMAB EMTANSINE
     Indication: HER2 positive breast cancer
     Dosage: 260 MG, 3/WEEK (CV) (DOSE FORM: 293)
     Route: 042
     Dates: start: 20150924, end: 20150924
  161. ADO-TRASTUZUMAB EMTANSINE [Suspect]
     Active Substance: ADO-TRASTUZUMAB EMTANSINE
     Dosage: 260 MG, Q3W (EVERY 3 WEEKS) (TARGETED THERAPY) (DOSE FORM: 293; CUMULATIVE DOSE TO FIRST REACTION: 1
     Route: 042
     Dates: start: 20150924, end: 20150924
  162. ADO-TRASTUZUMAB EMTANSINE [Suspect]
     Active Substance: ADO-TRASTUZUMAB EMTANSINE
     Dosage: 840 MG, Q3W (DOSE FORM: 230; CUMULATIVE DOSE: 17721.78 MG)
     Route: 042
     Dates: start: 20150924, end: 20150924
  163. ADO-TRASTUZUMAB EMTANSINE [Suspect]
     Active Substance: ADO-TRASTUZUMAB EMTANSINE
     Dosage: 450 MG, Q3W (TARGETED THERAPY) (DOSE FORM: 230; CUMULATIVE DOSE TO FIRST REACTION: 1969.087 MG AND C
     Route: 042
     Dates: start: 20151016
  164. ADO-TRASTUZUMAB EMTANSINE [Suspect]
     Active Substance: ADO-TRASTUZUMAB EMTANSINE
     Dosage: 600 MG, Q3W (DOSE FORM: 230; CUMULATIVE DOSE: 17721.78 MG)
     Route: 042
  165. ADO-TRASTUZUMAB EMTANSINE [Suspect]
     Active Substance: ADO-TRASTUZUMAB EMTANSINE
     Dosage: 260 MG TIW (DOSE FORM: 230)
     Route: 042
     Dates: start: 20150924, end: 20150924
  166. ADO-TRASTUZUMAB EMTANSINE [Suspect]
     Active Substance: ADO-TRASTUZUMAB EMTANSINE
     Dosage: 450 MG, TIW/EVERY 3 WEEKS (DOSE FORM: 230) (TARGETED THERAPY) CUMULATIVE DOSE: 2936.6072 MG AND 1969
     Route: 042
     Dates: start: 20151016
  167. ADO-TRASTUZUMAB EMTANSINE [Suspect]
     Active Substance: ADO-TRASTUZUMAB EMTANSINE
     Dosage: 260 MG, 3/WEEK (CV) (DOSAGE FORM: 293) (DOSE FORM: 230) CUMULATIVE DOSE: 17721.78 MG
     Route: 042
     Dates: start: 20150924, end: 20150924
  168. ADO-TRASTUZUMAB EMTANSINE [Suspect]
     Active Substance: ADO-TRASTUZUMAB EMTANSINE
     Dosage: 260 MG, EVERY 3 WEEKS (TARGETED THERAPY) (DOSE FORM: 230; CUMULATIVE DOSE TO FIRST REACTION: 1969.08
     Route: 042
     Dates: start: 20150924, end: 20150924
  169. ADO-TRASTUZUMAB EMTANSINE [Suspect]
     Active Substance: ADO-TRASTUZUMAB EMTANSINE
     Dosage: 450 MG, EVERY 3 WEEKS, TIW (TARGETED THERAPY) (DOSE FORM: 293)
     Route: 042
     Dates: start: 20151016
  170. ADO-TRASTUZUMAB EMTANSINE [Suspect]
     Active Substance: ADO-TRASTUZUMAB EMTANSINE
     Dosage: 260 MG, TIW (TARGETED THERAPY)
     Route: 042
     Dates: start: 20150924, end: 20150924
  171. ADO-TRASTUZUMAB EMTANSINE [Suspect]
     Active Substance: ADO-TRASTUZUMAB EMTANSINE
     Indication: Breast cancer metastatic
     Dosage: 260 MG, EVERY 3 WEEKS, TARGETED THERAPY (DOSE FORM: 230)
     Route: 042
     Dates: start: 20150924, end: 20150924
  172. ADO-TRASTUZUMAB EMTANSINE [Suspect]
     Active Substance: ADO-TRASTUZUMAB EMTANSINE
     Indication: HER2 positive breast cancer
     Dosage: 450 MG, EVERY 3 WEEKS, TARGETED THERAPY (DOSE FORM: 230)
     Route: 042
     Dates: start: 20151016
  173. ADO-TRASTUZUMAB EMTANSINE [Suspect]
     Active Substance: ADO-TRASTUZUMAB EMTANSINE
     Dosage: UNK, DOSAGE FORM: 230
  174. ADO-TRASTUZUMAB EMTANSINE [Suspect]
     Active Substance: ADO-TRASTUZUMAB EMTANSINE
     Dosage: 260 MG, EVERY 3 WEEKS, TARGETED THERAPY (DOSE FORM: 293)
     Route: 042
     Dates: start: 20150924, end: 20150924
  175. ADO-TRASTUZUMAB EMTANSINE [Suspect]
     Active Substance: ADO-TRASTUZUMAB EMTANSINE
     Dosage: 450 MG, EVERY 3 WEEKS, TARGETED THERAPY (DOSE FORM: 293)
     Route: 042
     Dates: start: 20151016
  176. ADO-TRASTUZUMAB EMTANSINE [Suspect]
     Active Substance: ADO-TRASTUZUMAB EMTANSINE
     Dosage: 450 MG, EVERY 3 WEEKS, TARGETED THERAPY (DOSE FORM: 230; CUMULATIVE DOSE: 2936.6072 MG)
     Route: 042
     Dates: start: 20151016
  177. ADO-TRASTUZUMAB EMTANSINE [Suspect]
     Active Substance: ADO-TRASTUZUMAB EMTANSINE
     Dosage: 840 MG, Q3W (CUMULATIVE DOSE TO FIRST REACTION: 17721.78 MG) (DOSE FORM:230)
     Route: 042
     Dates: start: 20150924, end: 20150924
  178. ADO-TRASTUZUMAB EMTANSINE [Suspect]
     Active Substance: ADO-TRASTUZUMAB EMTANSINE
     Dosage: 260 MG, 3/WEEK (CV) (DOSAGE FORM: 293)
     Route: 042
  179. ADO-TRASTUZUMAB EMTANSINE [Suspect]
     Active Substance: ADO-TRASTUZUMAB EMTANSINE
     Dosage: 600 MG, Q3W, DOSE FORM: 230, CUMULATIVE DOSE: 17721.78
     Route: 042
  180. ADO-TRASTUZUMAB EMTANSINE [Suspect]
     Active Substance: ADO-TRASTUZUMAB EMTANSINE
     Dosage: (DOSAGE TEXT: 450 MG, EVERY 3 WEEKS, TIW (TARGETED THERAPY), DOSE FORM: 293)
     Route: 042
     Dates: start: 20151016
  181. AMITRIPTYLINE [Concomitant]
     Active Substance: AMITRIPTYLINE
     Indication: Neuropathy peripheral
     Dosage: 10 MG EVERY 0.33 DAY (DOSE FORM: 245)
     Route: 048
     Dates: start: 201608
  182. AMITRIPTYLINE [Concomitant]
     Active Substance: AMITRIPTYLINE
     Dosage: 10 MG, TID (3/DAY) (0.33 DAY)/30 MG, QD (DOSE FORM:245)
     Route: 048
     Dates: start: 201608
  183. AMITRIPTYLINE [Concomitant]
     Active Substance: AMITRIPTYLINE
     Dosage: 10 MILLIGRAM, TID (DOSE FORM: 245)
     Route: 048
     Dates: start: 201608
  184. AMITRIPTYLINE [Concomitant]
     Active Substance: AMITRIPTYLINE
     Dosage: 30 MG, EVERY 1 DAYS (DOSE FORM: 245)
     Route: 048
     Dates: start: 201608
  185. AMITRIPTYLINE [Concomitant]
     Active Substance: AMITRIPTYLINE
     Dosage: 10 MG, TID (3/DAY) (3X/DAY)
     Route: 048
     Dates: start: 201608
  186. AMITRIPTYLINE [Concomitant]
     Active Substance: AMITRIPTYLINE
     Dosage: 10 MILLIGRAM, TID (DOSAGE FOMR: 245)
     Route: 048
     Dates: start: 201608
  187. AMOXICILLIN [Concomitant]
     Active Substance: AMOXICILLIN
     Indication: Upper respiratory tract infection
     Dosage: 1500 MG
     Route: 048
     Dates: start: 20160330
  188. AMOXICILLIN [Concomitant]
     Active Substance: AMOXICILLIN
     Dosage: 500 MG, TID (DOSE FORM: 245)
     Route: 048
     Dates: start: 20160330, end: 20160406
  189. AMOXICILLIN [Concomitant]
     Active Substance: AMOXICILLIN
     Dosage: 1500 MG
     Route: 048
     Dates: start: 20160406
  190. AMOXICILLIN [Concomitant]
     Active Substance: AMOXICILLIN
     Dosage: 500 MG, (0.33 DAY)
     Route: 048
     Dates: start: 20160330, end: 20160406
  191. AMOXICILLIN [Concomitant]
     Active Substance: AMOXICILLIN
     Dosage: 1500 MG (DOSE FORM: 245; CUMULATIVE DOSE: 43437.5 MG)
     Route: 048
     Dates: start: 20160330, end: 20160406
  192. AMOXICILLIN [Concomitant]
     Active Substance: AMOXICILLIN
     Dosage: 1500 MG (DOSE FORM: 245; CUMULATIVE DOSE: 135437.5 MG)
     Route: 048
     Dates: start: 20160330, end: 20160406
  193. AMOXICILLIN [Concomitant]
     Active Substance: AMOXICILLIN
     Dosage: 500 MG, TID (3/DAY) (CUMULATIVE DOSE TO FIRST REACTION: 12000 MG)
     Route: 048
     Dates: start: 20160330, end: 20160406
  194. AMOXICILLIN [Concomitant]
     Active Substance: AMOXICILLIN
     Indication: Upper respiratory tract infection
     Dosage: 1500 MG, QD (DOSE FORM: 245)
     Route: 048
     Dates: start: 20160330, end: 20160406
  195. BUDESONIDE [Concomitant]
     Active Substance: BUDESONIDE
     Indication: Product used for unknown indication
     Dosage: 9 MILLIGRAM, QD (1X/DAY) (DOSE FORM: 5)
     Route: 048
     Dates: start: 20180220
  196. BUDESONIDE [Concomitant]
     Active Substance: BUDESONIDE
     Dosage: 9 MG, QD (1/DAY) (CUMULATIVE DOSE TO FIRST REACTION: 6489.0 MG)
     Route: 065
     Dates: start: 20180220
  197. BUDESONIDE [Concomitant]
     Active Substance: BUDESONIDE
     Dosage: 9 MG
     Route: 065
     Dates: start: 20180220
  198. BUDESONIDE [Concomitant]
     Active Substance: BUDESONIDE
     Indication: Product used for unknown indication
     Dosage: 9 MG, QD
     Route: 065
     Dates: start: 20180220
  199. CITALOPRAM [Concomitant]
     Active Substance: CITALOPRAM HYDROBROMIDE
     Indication: Product used for unknown indication
     Dosage: 20 MILLIGRAM, QD (1X/DAY) (DOSE FORM: 245)
     Route: 048
  200. CITALOPRAM [Concomitant]
     Active Substance: CITALOPRAM HYDROBROMIDE
     Dosage: 20 MG, QD (1/DAY)
     Route: 048
  201. CITALOPRAM [Concomitant]
     Active Substance: CITALOPRAM HYDROBROMIDE
     Dosage: 20 MG, QD
     Route: 048
  202. DOCUSATE [Concomitant]
     Active Substance: DOCUSATE
     Dosage: UNK
  203. DOCUSATE SODIUM [Concomitant]
     Active Substance: DOCUSATE SODIUM
     Dosage: UNK
  204. DOMPERIDONE [Concomitant]
     Active Substance: DOMPERIDONE
     Dosage: UNK
  205. GLYCERIN [Concomitant]
     Active Substance: GLYCERIN
     Indication: Product used for unknown indication
     Dosage: 4 GRAM
     Route: 048
     Dates: start: 20180511, end: 201805
  206. GLYCERIN [Concomitant]
     Active Substance: GLYCERIN
     Dosage: 4 G, UNK
     Route: 048
     Dates: start: 20180511
  207. GLYCERIN [Concomitant]
     Active Substance: GLYCERIN
     Dosage: 4 GRAM
     Route: 065
     Dates: start: 20180511, end: 201805
  208. GLYCERIN [Concomitant]
     Active Substance: GLYCERIN
     Dosage: 4 GRAM
     Dates: start: 20180511, end: 201805
  209. HALOPERIDOL [Concomitant]
     Active Substance: HALOPERIDOL
     Dosage: UNK
  210. HUMALOG [Concomitant]
     Active Substance: INSULIN LISPRO
     Indication: Product used for unknown indication
     Dosage: 16 UNIT
     Route: 058
  211. HUMALOG [Concomitant]
     Active Substance: INSULIN LISPRO
     Dosage: 3 OT, QD (16 UNIT)
     Route: 058
  212. HUMALOG [Concomitant]
     Active Substance: INSULIN LISPRO
     Dosage: 16 DF, TID (3/DAY) (3X/DAY)
     Route: 058
  213. HUMALOG [Concomitant]
     Active Substance: INSULIN LISPRO
     Dosage: 16 DF EVERY 0.33 DAY
     Route: 058
  214. HUMALOG [Concomitant]
     Active Substance: INSULIN LISPRO
     Dosage: 3 DF, QD (16 UNIT)
     Route: 058
  215. HUMALOG [Concomitant]
     Active Substance: INSULIN LISPRO
     Dosage: 16 [IU]; PER 0.33 DAY
     Route: 058
  216. HUMALOG [Concomitant]
     Active Substance: INSULIN LISPRO
     Dosage: 16 DF, QD (1/DAY)/16 DOSAGE FORM, QD
     Route: 058
  217. HUMALOG [Concomitant]
     Active Substance: INSULIN LISPRO
     Dosage: 16 INTERNATIONAL UNIT, TID
     Route: 058
  218. HUMALOG [Concomitant]
     Active Substance: INSULIN LISPRO
     Dosage: 48 IU, QD
     Route: 058
  219. HUMALOG [Concomitant]
     Active Substance: INSULIN LISPRO
     Dosage: 48 DF, QD
     Route: 058
  220. HUMALOG [Concomitant]
     Active Substance: INSULIN LISPRO
     Dosage: 16 INTERNATIONAL UNIT, TID
     Route: 058
  221. HUMALOG [Concomitant]
     Active Substance: INSULIN LISPRO
     Dosage: 16 DF, 3X/DAY
     Route: 058
  222. HUMALOG [Concomitant]
     Active Substance: INSULIN LISPRO
     Dosage: 16 DF, 3X/DAY
     Route: 058
  223. SCOPOLAMINE [Concomitant]
     Active Substance: SCOPOLAMINE
     Indication: Product used for unknown indication
     Dosage: 20 MG IN 1 DAY
     Route: 065
     Dates: start: 20171219
  224. SCOPOLAMINE [Concomitant]
     Active Substance: SCOPOLAMINE
     Dosage: 20 MG
     Route: 065
     Dates: start: 20171219
  225. HYOSCINE-N-BUTYL BROMIDE [Concomitant]
     Indication: Product used for unknown indication
     Dosage: 20 MG PER 0.33 DAY
     Route: 048
     Dates: start: 20171219, end: 2018
  226. HYOSCINE-N-BUTYL BROMIDE [Concomitant]
     Dosage: 20 MILLIGRAM, TID (DOSE FORM: 245)
     Route: 048
     Dates: start: 20171219, end: 2018
  227. HYOSCINE-N-BUTYL BROMIDE [Concomitant]
     Dosage: 20 MG (DOSE FORM: 245)
     Dates: start: 20171219, end: 2018
  228. LACTULOSE [Concomitant]
     Active Substance: LACTULOSE
     Indication: Product used for unknown indication
     Dosage: UNK
     Route: 065
  229. LACTULOSE [Concomitant]
     Active Substance: LACTULOSE
     Dosage: UNK
  230. LANSOPRAZOLE [Concomitant]
     Active Substance: LANSOPRAZOLE
     Indication: Product used for unknown indication
     Dosage: 30 MILLIGRAM, QD (DOSE FORM: 245)
     Route: 048
  231. LANSOPRAZOLE [Concomitant]
     Active Substance: LANSOPRAZOLE
     Dosage: 30 MG, QD (1/DAY)
     Route: 048
  232. LANSOPRAZOLE [Concomitant]
     Active Substance: LANSOPRAZOLE
     Dosage: 30 MG, QD
     Route: 048
  233. LANSOPRAZOLE [Concomitant]
     Active Substance: LANSOPRAZOLE
     Dosage: 30 MG, EVERY 1 DAY (1X/DAY) (DOSE FORM: 245)
     Route: 048
  234. LEVEMIR [Concomitant]
     Active Substance: INSULIN DETEMIR
     Indication: Product used for unknown indication
     Dosage: 1 UNK, QD (38 UNIT)38 DF, QD (1/DAY)1 DF, QD (38 UNIT)
     Route: 058
  235. LEVEMIR [Concomitant]
     Active Substance: INSULIN DETEMIR
     Dosage: 38 DF, QD (1/DAY) (1X/DAY)
     Route: 058
  236. LEVEMIR [Concomitant]
     Active Substance: INSULIN DETEMIR
     Dosage: UNK, QD
     Route: 058
  237. LEVEMIR [Concomitant]
     Active Substance: INSULIN DETEMIR
     Dosage: 38 DF, 1X/DAY
     Route: 058
  238. LEVEMIR [Concomitant]
     Active Substance: INSULIN DETEMIR
     Dosage: 38 DF, 1X/DAY
     Route: 058
  239. LEVEMIR [Concomitant]
     Active Substance: INSULIN DETEMIR
     Dosage: 38 DF
     Route: 058
  240. LOPERAMIDE [Concomitant]
     Active Substance: LOPERAMIDE
     Indication: Product used for unknown indication
     Dosage: 2 MG
     Route: 048
     Dates: start: 20150922, end: 20160122
  241. LOPERAMIDE [Concomitant]
     Active Substance: LOPERAMIDE
     Dosage: 2 MG UNK (DOSAGE FORM: 245)
     Route: 048
     Dates: start: 20150922, end: 20160122
  242. POLYETHYLENE GLYCOLS [Concomitant]
     Active Substance: POLYETHYLENE GLYCOLS
     Dosage: UNK
  243. METFORMIN [Concomitant]
     Active Substance: METFORMIN HYDROCHLORIDE
     Indication: Product used for unknown indication
     Dosage: 1000 MG, QD (1/DAY)
     Route: 048
  244. METFORMIN [Concomitant]
     Active Substance: METFORMIN HYDROCHLORIDE
     Dosage: 500 MG, BID (2/DAY)
     Route: 048
  245. METFORMIN [Concomitant]
     Active Substance: METFORMIN HYDROCHLORIDE
     Dosage: 500 MG (0.5/DAY)
     Route: 048
  246. METFORMIN [Concomitant]
     Active Substance: METFORMIN HYDROCHLORIDE
     Dosage: 500 MG, UNK (DOSE FORM: 245)
     Route: 048
  247. METFORMIN [Concomitant]
     Active Substance: METFORMIN HYDROCHLORIDE
     Dosage: 500 MILLIGRAM, BID (DOSE FORM: 245)
     Route: 065
  248. METFORMIN [Concomitant]
     Active Substance: METFORMIN HYDROCHLORIDE
     Dosage: 500 MG (DOSE FORM: 245)
     Route: 048
  249. METFORMIN [Concomitant]
     Active Substance: METFORMIN HYDROCHLORIDE
     Dosage: 1000 MG, EVERY 1 DAY (DOSE FORM: 245)
     Route: 048
  250. METFORMIN [Concomitant]
     Active Substance: METFORMIN HYDROCHLORIDE
     Dosage: 500 MG (0.5/DAY)
     Route: 048
  251. METFORMIN [Concomitant]
     Active Substance: METFORMIN HYDROCHLORIDE
     Dosage: 500 MG
     Route: 048
  252. METFORMIN [Concomitant]
     Active Substance: METFORMIN HYDROCHLORIDE
     Dosage: 500 MG (0.5 ) (DOSAGE FORM: 245)
     Route: 048
  253. METFORMIN [Concomitant]
     Active Substance: METFORMIN HYDROCHLORIDE
     Dosage: 500 MILLIGRAM, BID (DOSE FORM: 245)
     Route: 048
  254. METFORMIN [Concomitant]
     Active Substance: METFORMIN HYDROCHLORIDE
     Dosage: 500 MG (0.5/DAY)
  255. OMEPRAZOLE [Concomitant]
     Active Substance: OMEPRAZOLE
     Dosage: UNK
  256. ONDANSETRON [Concomitant]
     Active Substance: ONDANSETRON
     Dosage: UNK
  257. RANITIDINE [Concomitant]
     Active Substance: RANITIDINE
     Dosage: UNK
  258. SENNOSIDE B [Concomitant]
     Active Substance: SENNOSIDE B
     Dosage: UNK
  259. ZOPICLONE [Concomitant]
     Active Substance: ZOPICLONE
     Indication: Insomnia
     Dosage: 3.75 MILLIGRAM, QD (1X/DAY) (DOSE FORM: 245)
     Route: 048
     Dates: start: 20170812, end: 20170822
  260. ZOPICLONE [Concomitant]
     Active Substance: ZOPICLONE
     Dosage: UNK
  261. ZOPICLONE [Concomitant]
     Active Substance: ZOPICLONE
     Dosage: 3.75 MG, QD (1/DAY)
     Route: 048
     Dates: start: 20170812, end: 20170822
  262. ZOPICLONE [Concomitant]
     Active Substance: ZOPICLONE
     Dosage: 3.75 MILLIGRAM, QD (DOSE FORM: 245, CUMULATIVE DOSE: 1983.5938 MG)
     Route: 048
     Dates: start: 20170812, end: 20170822
  263. ZOPICLONE [Concomitant]
     Active Substance: ZOPICLONE
     Dosage: 3.75 MG
     Route: 048
     Dates: start: 20170812, end: 20170822

REACTIONS (9)
  - Aphonia [Recovered/Resolved]
  - Hyperglycaemia [Recovered/Resolved]
  - Neuropathy peripheral [Recovered/Resolved]
  - Upper respiratory tract infection [Recovered/Resolved]
  - Constipation [Recovered/Resolved]
  - Off label use [Unknown]
  - Constipation [Recovered/Resolved]
  - Cough [Recovered/Resolved]
  - Hot flush [Recovered/Resolved]

NARRATIVE: CASE EVENT DATE: 20160301
